FAERS Safety Report 17606416 (Version 4)
Quarter: 2021Q3

REPORT INFORMATION
  Report Type: Spontaneous
  Country: US (occurrence: US)
  Receive Date: 20200331
  Receipt Date: 20210720
  Transmission Date: 20211014
  Serious: Yes (Hospitalization)
  Sender: FDA-Public Use
  Company Number: US-ROCHE-2573135

PATIENT
  Age: 3 Year
  Sex: Male

DRUGS (3)
  1. HEMLIBRA [Suspect]
     Active Substance: EMICIZUMAB-KXWH
     Indication: FACTOR VIII DEFICIENCY
     Dosage: 60 MG/0.4 ML
     Route: 058
     Dates: start: 20200228
  2. HEMLIBRA [Suspect]
     Active Substance: EMICIZUMAB-KXWH
     Route: 058
     Dates: start: 20200227
  3. NOVOSEVEN [Concomitant]
     Active Substance: COAGULATION FACTOR VIIA RECOMBINANT HUMAN

REACTIONS (4)
  - Epistaxis [Recovered/Resolved]
  - Haemoptysis [Unknown]
  - Respiratory disorder [Unknown]
  - Mouth haemorrhage [Unknown]

NARRATIVE: CASE EVENT DATE: 20200505
